FAERS Safety Report 9891655 (Version 1)
Quarter: 2014Q1

REPORT INFORMATION
  Report Type: Spontaneous
  Country: US (occurrence: None)
  Receive Date: 20140211
  Receipt Date: 20140211
  Transmission Date: 20141002
  Serious: Yes (Hospitalization)
  Sender: FDA-Public Use
  Company Number: None

PATIENT
  Age: 54 Year
  Sex: Female
  Weight: 52.2 kg

DRUGS (6)
  1. HYDROMORPHONE [Suspect]
     Indication: PAIN
     Dosage: 0.2 MG?VIA PCA ?INTRAVENOUS
     Route: 042
     Dates: start: 20111004, end: 20111005
  2. FENTANYL [Suspect]
     Indication: PAIN
     Dosage: 225 MCG ?DURING SURGERR/REC?INTRAVENOUS
     Route: 042
     Dates: start: 20111004, end: 20111005
  3. HEPARIN [Concomitant]
  4. RANITIDINE [Concomitant]
  5. DOXYCYLINE [Concomitant]
  6. ACETAMINOPHEN WITH CODIENE [Concomitant]

REACTIONS (1)
  - Respiratory rate decreased [None]
